FAERS Safety Report 17559974 (Version 1)
Quarter: 2020Q1

REPORT INFORMATION
  Report Type: Spontaneous
  Country: US (occurrence: US)
  Receive Date: 20200319
  Receipt Date: 20200319
  Transmission Date: 20200409
  Serious: No
  Sender: FDA-Public Use
  Company Number: US-AMGEN-USASP2020044343

PATIENT
  Age: 63 Year
  Sex: Female

DRUGS (1)
  1. PROLIA [Suspect]
     Active Substance: DENOSUMAB
     Indication: OSTEOPOROSIS
     Dosage: UNK
     Route: 065
     Dates: start: 2017

REACTIONS (11)
  - Toothache [Unknown]
  - Malaise [Unknown]
  - Contusion [Recovering/Resolving]
  - Pyrexia [Unknown]
  - Asthma [Unknown]
  - Nasopharyngitis [Unknown]
  - Sinusitis [Unknown]
  - Tonsillitis [Unknown]
  - Swelling face [Recovering/Resolving]
  - Pain in jaw [Recovering/Resolving]
  - Facial pain [Recovering/Resolving]

NARRATIVE: CASE EVENT DATE: 20200302
